FAERS Safety Report 9474980 (Version 1)
Quarter: 2013Q3

REPORT INFORMATION
  Report Type: Spontaneous
  Country: US (occurrence: US)
  Receive Date: 20130824
  Receipt Date: 20130824
  Transmission Date: 20140515
  Serious: No
  Sender: FDA-Public Use
  Company Number: US-PFIZER INC-2013237961

PATIENT
  Age: 77 Year
  Sex: Female

DRUGS (5)
  1. NORVASC [Suspect]
     Indication: BLOOD PRESSURE ABNORMAL
     Dosage: UNK
  2. COZAAR [Suspect]
     Indication: BLOOD PRESSURE ABNORMAL
     Dosage: UNK
  3. CYMBALTA [Concomitant]
     Indication: PAIN
     Dosage: UNK
  4. CYMBALTA [Concomitant]
     Indication: RHEUMATOID ARTHRITIS
  5. PREDNISONE [Concomitant]
     Indication: RHEUMATOID ARTHRITIS
     Dosage: UNK

REACTIONS (1)
  - Drug ineffective [Unknown]
